FAERS Safety Report 13851787 (Version 6)
Quarter: 2019Q1

REPORT INFORMATION
  Report Type: Report from Study
  Country: AU (occurrence: AU)
  Receive Date: 20170810
  Receipt Date: 20190115
  Transmission Date: 20190417
  Serious: Yes (Hospitalization)
  Sender: FDA-Public Use
  Company Number: AU-ROCHE-1974933

PATIENT
  Age: 69 Year
  Sex: Male
  Weight: 87.6 kg

DRUGS (32)
  1. VENETOCLAX. [Suspect]
     Active Substance: VENETOCLAX
     Indication: CHRONIC LYMPHOCYTIC LEUKAEMIA
     Dosage: DATE OF MOST RECENT DOSE OF VENETOCLAX 400MG: 23/FEB/2017
     Route: 048
     Dates: start: 20160628
  2. METOCLOPRAMIDE. [Concomitant]
     Active Substance: METOCLOPRAMIDE
     Indication: NAUSEA
     Route: 042
     Dates: start: 20160516
  3. ACICLOVIR [Concomitant]
     Active Substance: ACYCLOVIR
     Indication: INFECTION PROPHYLAXIS
     Route: 048
     Dates: start: 20160516, end: 20170428
  4. BION TEARS [Concomitant]
     Active Substance: DEXTRAN 70\HYPROMELLOSE 2910 (4000 MPA.S)
     Indication: EYE IRRITATION
     Dosage: DROPS
     Route: 047
     Dates: start: 20160525
  5. IBUPROFEN. [Concomitant]
     Active Substance: IBUPROFEN
     Indication: BACK PAIN
  6. PROMETHAZINE [Concomitant]
     Active Substance: PROMETHAZINE\PROMETHAZINE HYDROCHLORIDE
     Route: 042
     Dates: start: 20160516
  7. NIVESTIM [Concomitant]
     Active Substance: FILGRASTIM
     Dosage: ASSIST CELL RECOVERY
     Route: 058
     Dates: start: 20160601, end: 20170329
  8. ORDINE [Concomitant]
     Active Substance: MORPHINE
     Indication: BACK PAIN
  9. AMLODIPINE [Concomitant]
     Active Substance: AMLODIPINE BESYLATE
     Route: 048
     Dates: start: 20170311
  10. PREDNISOLONE. [Concomitant]
     Active Substance: PREDNISOLONE
     Indication: THROMBOCYTOPENIA
     Route: 048
     Dates: start: 20170317, end: 20170321
  11. PREDNISOLONE. [Concomitant]
     Active Substance: PREDNISOLONE
     Indication: PLATELET COUNT DECREASED
     Route: 048
     Dates: start: 20170511, end: 20170519
  12. LORATADINE. [Concomitant]
     Active Substance: LORATADINE
     Route: 048
     Dates: start: 20160516
  13. ENDONE [Concomitant]
     Active Substance: OXYCODONE HYDROCHLORIDE
     Indication: BACK PAIN
     Route: 048
     Dates: start: 20160808
  14. PANTOPRAZOLE [Concomitant]
     Active Substance: PANTOPRAZOLE
     Dosage: PREVENT REFLUX WHILE ON STEROIDS
     Route: 048
     Dates: start: 20170511, end: 20170521
  15. ASPIRIN. [Concomitant]
     Active Substance: ASPIRIN
     Dosage: SEVERE PROGRESSIVE AORTIC STENOSIS (VALVE REPLACEMENT)
     Route: 048
     Dates: start: 20170624
  16. METOCLOPRAMIDE. [Concomitant]
     Active Substance: METOCLOPRAMIDE
     Indication: VOMITING
     Route: 048
     Dates: start: 20160808
  17. LACTULOSE. [Concomitant]
     Active Substance: LACTULOSE
     Indication: CONSTIPATION
     Route: 048
     Dates: start: 20160719
  18. RANITIDINE. [Concomitant]
     Active Substance: RANITIDINE
     Indication: CYTOKINE RELEASE SYNDROME
     Route: 042
     Dates: start: 20160516
  19. IBUPROFEN. [Concomitant]
     Active Substance: IBUPROFEN
     Indication: MUSCULOSKELETAL PAIN
     Route: 048
     Dates: start: 20160726
  20. PREDNISOLONE. [Concomitant]
     Active Substance: PREDNISOLONE
     Route: 048
     Dates: start: 20170520, end: 20170521
  21. OBINUTUZUMAB. [Suspect]
     Active Substance: OBINUTUZUMAB
     Indication: CHRONIC LYMPHOCYTIC LEUKAEMIA
     Dosage: DATE OF MOST RECENT DOSE OF OBINUTUZUMAB 1000MG: 25/OCT/2016 AT 10:00
     Route: 042
     Dates: start: 20160516
  22. METAMUCIL [Concomitant]
     Active Substance: PLANTAGO SEED
     Dosage: DOSE: 1OTHER
     Route: 048
     Dates: start: 200401
  23. DEXAMETHASONE. [Concomitant]
     Active Substance: DEXAMETHASONE
     Dosage: PREVENT OR MANAGE INFUSION REACTION
     Route: 042
     Dates: start: 20160516
  24. PLATELETS [Concomitant]
     Active Substance: HUMAN PLATELET, ALLOGENIC
     Indication: THROMBOCYTOPENIA
     Dosage: 1UNIT
     Route: 042
     Dates: start: 20170315, end: 20170315
  25. PLAVIX [Concomitant]
     Active Substance: CLOPIDOGREL BISULFATE
     Dosage: VALVE REPLACEMENT
     Route: 048
     Dates: start: 20170624
  26. PARACETAMOL [Concomitant]
     Active Substance: ACETAMINOPHEN
     Dosage: PROPHYLAXIS OR PAIN OR FEVER
     Route: 048
     Dates: start: 20160516
  27. ENDONE [Concomitant]
     Active Substance: OXYCODONE HYDROCHLORIDE
     Indication: MUSCULOSKELETAL PAIN
  28. AMLODIPINE [Concomitant]
     Active Substance: AMLODIPINE BESYLATE
     Indication: HYPERTENSION
     Route: 048
     Dates: start: 20170224, end: 20170310
  29. COTRIMOXAZOLE [Concomitant]
     Active Substance: SULFAMETHOXAZOLE\TRIMETHOPRIM
     Indication: INFECTION PROPHYLAXIS
     Route: 048
     Dates: start: 20160516, end: 20170329
  30. PROMETHAZINE [Concomitant]
     Active Substance: PROMETHAZINE\PROMETHAZINE HYDROCHLORIDE
     Route: 048
     Dates: start: 20160606
  31. ORDINE [Concomitant]
     Active Substance: MORPHINE
     Indication: MUSCULOSKELETAL PAIN
     Route: 048
     Dates: start: 20160810
  32. BENEFIBRE [Concomitant]
     Active Substance: INULIN
     Indication: CONSTIPATION
     Dosage: DOSE: 2OTHER
     Route: 048
     Dates: start: 20160614

REACTIONS (1)
  - Aortic stenosis [Not Recovered/Not Resolved]

NARRATIVE: CASE EVENT DATE: 20170224
